FAERS Safety Report 13573696 (Version 1)
Quarter: 2017Q2

REPORT INFORMATION
  Report Type: Spontaneous
  Country: US (occurrence: US)
  Receive Date: 20170523
  Receipt Date: 20170523
  Transmission Date: 20170830
  Serious: Yes (Disabling)
  Sender: FDA-Public Use
  Company Number: None

PATIENT
  Age: 54 Year
  Sex: Male
  Weight: 81.72 kg

DRUGS (3)
  1. ASTHMA DECONGESTANT [Concomitant]
  2. BENZTROPE [Concomitant]
  3. CLOZARIL [Suspect]
     Active Substance: CLOZAPINE
     Indication: SCHIZOPHRENIA
     Dosage: 2 PILLS, 200MG, 1X NIGHT
     Route: 048
     Dates: start: 2014

REACTIONS (4)
  - Haematemesis [None]
  - Ulcer haemorrhage [None]
  - Liver disorder [None]
  - Anxiety [None]

NARRATIVE: CASE EVENT DATE: 20170327
